FAERS Safety Report 6412555-6 (Version None)
Quarter: 2009Q4

REPORT INFORMATION
  Report Type: 
  Country: None (occurrence: None)
  Receive Date: 20091023
  Receipt Date: 20091014
  Transmission Date: 20100525
  Serious: Yes (Hospitalization)
  Sender: FDA-Public Use
  Company Number: FI-ELI_LILLY_AND_COMPANY-FI200909001857

PATIENT
  Sex: Female
  Weight: 50 kg

DRUGS (6)
  1. PEMETREXED [Suspect]
     Indication: NON-SMALL CELL LUNG CANCER
     Dosage: 500 MG/M2 ON DAY ONE EVERY 21 DAYS
     Route: 042
     Dates: start: 20090617
  2. CISPLATIN [Suspect]
     Indication: NON-SMALL CELL LUNG CANCER
     Dosage: 75 MG/M2 ON DAY ONE EVERY 21 DAYS
     Route: 042
     Dates: start: 20090617
  3. FOLIC ACID [Concomitant]
     Indication: PROPHYLAXIS
     Dates: start: 20090609
  4. VITAMIN B-12 [Concomitant]
     Indication: PROPHYLAXIS
     Dates: start: 20090609
  5. DEXAMETHASONE [Concomitant]
     Indication: PROPHYLAXIS
     Dates: start: 20090616
  6. TRAMADOL HCL [Concomitant]
     Indication: PAIN
     Dosage: UNK, UNK
     Dates: start: 20090101

REACTIONS (1)
  - PULMONARY EMBOLISM [None]
